FAERS Safety Report 9222230 (Version 1)
Quarter: 2013Q2

REPORT INFORMATION
  Report Type: Spontaneous
  Country: US (occurrence: None)
  Receive Date: 20130408
  Receipt Date: 20130408
  Transmission Date: 20140414
  Serious: Yes (Other)
  Sender: FDA-Public Use
  Company Number: 1209-506

PATIENT
  Age: 71 Year
  Sex: Male
  Weight: 113.4 kg

DRUGS (3)
  1. VEGF TRAP-EYE (INJECTION) (VEGF TRAP) [Suspect]
     Indication: AGE-RELATED MACULAR DEGENERATION
     Dates: start: 20100318
  2. PRESERVISION VITAMINS [Concomitant]
  3. SYSTANE (RHINARIS) [Concomitant]

REACTIONS (1)
  - Angle closure glaucoma [None]
